FAERS Safety Report 5427818-0 (Version None)
Quarter: 2007Q3

REPORT INFORMATION
  Report Type: 
  Country: None (occurrence: None)
  Receive Date: 20070828
  Receipt Date: 20070816
  Transmission Date: 20080115
  Serious: Yes (Hospitalization)
  Sender: FDA-Public Use
  Company Number: US-ELI_LILLY_AND_COMPANY-US200708003436

PATIENT
  Age: 76 Year
  Sex: Female

DRUGS (4)
  1. FORTEO [Suspect]
     Indication: OSTEOPOROSIS
     Dosage: UNK, UNK
     Dates: start: 20070501, end: 20070101
  2. NEXIUM [Concomitant]
     Indication: GASTRIC DISORDER
  3. LASIX [Concomitant]
  4. COUMADIN [Concomitant]
     Indication: THROMBOSIS

REACTIONS (3)
  - GALLBLADDER OPERATION [None]
  - NAUSEA [None]
  - PAIN [None]
